FAERS Safety Report 16710978 (Version 1)
Quarter: 2019Q3

REPORT INFORMATION
  Report Type: Report from Study
  Country: NL (occurrence: NL)
  Receive Date: 20190816
  Receipt Date: 20190816
  Transmission Date: 20191004
  Serious: Yes (Other)
  Sender: FDA-Public Use
  Company Number: NL-PFIZER INC-2019346812

PATIENT
  Age: 70 Year
  Sex: Female

DRUGS (6)
  1. AFATINIB [Concomitant]
     Active Substance: AFATINIB
     Dosage: 30 MG, 1X/DAY
  2. DESOXIMETASON [Concomitant]
     Active Substance: DESOXIMETASONE
     Dosage: 1 DF, 1X/DAY (2.5 MILLIGRAM PER GRAM, DAILY)
  3. XGEVA [Suspect]
     Active Substance: DENOSUMAB
     Indication: PROPHYLAXIS
     Dosage: 120 MG, CYCLIC (EVERY 4 WEEKS)
  4. DOXYCYCLINE HYCLATE. [Suspect]
     Active Substance: DOXYCYCLINE HYCLATE
     Indication: NONINFECTIVE ENCEPHALITIS
     Dosage: 100 MG, UNK
  5. CLOBETASOL [Concomitant]
     Active Substance: CLOBETASOL
     Dosage: 1 DF, 1X/DAY (0.5 MILLIGRAM PER GRAM DAILY)
  6. CETOMACROGOL 1000 [Concomitant]
     Dosage: UNK, AS NEEDED

REACTIONS (3)
  - Diarrhoea [Unknown]
  - Noninfective encephalitis [Unknown]
  - Genital hyperaesthesia [Unknown]
